FAERS Safety Report 7623792-7 (Version None)
Quarter: 2011Q3

REPORT INFORMATION
  Report Type: 
  Country: None (occurrence: None)
  Receive Date: 20110720
  Receipt Date: 20110705
  Transmission Date: 20111222
  Serious: Yes (Hospitalization)
  Sender: FDA-Public Use
  Company Number: IL-SANOFI-AVENTIS-2011SA044179

PATIENT
  Age: 81 Year
  Sex: Male
  Weight: 87 kg

DRUGS (12)
  1. BISOPROLOL [Concomitant]
  2. DOXAZOSIN MESYLATE [Concomitant]
  3. RAMIPRIL [Concomitant]
  4. FUROSEMIDE [Concomitant]
     Dates: end: 20110429
  5. GLUCOPHAGE [Concomitant]
  6. DIGOXIN [Concomitant]
     Dates: end: 20110429
  7. DRONEDARONE HCL [Suspect]
     Indication: ATRIAL FIBRILLATION
     Route: 048
     Dates: start: 20110228, end: 20110301
  8. METFORMIN HCL [Concomitant]
     Dates: end: 20110428
  9. ASPIRIN [Concomitant]
     Dates: end: 20110426
  10. WARFARIN SODIUM [Concomitant]
  11. ATORVASTATIN [Concomitant]
  12. RAMIPRIL [Concomitant]
     Dates: end: 20110428

REACTIONS (2)
  - HAEMATURIA [None]
  - RENAL CANCER [None]
